FAERS Safety Report 9164947 (Version 1)
Quarter: 2013Q1

REPORT INFORMATION
  Report Type: Spontaneous
  Country: US (occurrence: None)
  Receive Date: 20130313
  Receipt Date: 20130313
  Transmission Date: 20140127
  Serious: No
  Sender: FDA-Public Use
  Company Number: None

PATIENT
  Age: 61 Year
  Sex: Male
  Weight: 112.8 kg

DRUGS (1)
  1. DOFETILIDE [Suspect]
     Indication: ATRIAL FIBRILLATION
     Dosage: 250 MG BID PO
     Route: 048
     Dates: start: 20110324, end: 20120418

REACTIONS (1)
  - Heart rate irregular [None]
